FAERS Safety Report 12496580 (Version 2)
Quarter: 2016Q2

REPORT INFORMATION
  Report Type: Other
  Country: DE (occurrence: DE)
  Receive Date: 20160624
  Receipt Date: 20160624
  Transmission Date: 20160815
  Serious: Yes (Other)
  Sender: FDA-Public Use
  Company Number: DE-CIPLA LTD.-2016DE08091

PATIENT

DRUGS (18)
  1. QUILONIUM-R [Interacting]
     Active Substance: LITHIUM CARBONATE
     Dosage: 225 MG/TG
     Route: 048
     Dates: start: 20130426, end: 20130428
  2. QUILONIUM-R [Interacting]
     Active Substance: LITHIUM CARBONATE
     Dosage: 225 MG/TG
     Route: 048
     Dates: start: 20130503, end: 20130503
  3. L-THYROXINE [Concomitant]
     Active Substance: LEVOTHYROXINE
     Dosage: 15 UG/?
     Route: 065
     Dates: start: 20130423
  4. RAMIPRIL. [Interacting]
     Active Substance: RAMIPRIL
     Dosage: 5 MG/TG
     Dates: start: 20130501, end: 20130524
  5. HCT HEXAL [Interacting]
     Active Substance: HYDROCHLOROTHIAZIDE
     Dosage: 12.5 MG/TG
     Route: 048
     Dates: start: 20130412, end: 20130604
  6. QUILONIUM-R [Interacting]
     Active Substance: LITHIUM CARBONATE
     Indication: DEPRESSION
     Dosage: 50 MG/TG
     Route: 048
     Dates: start: 20130429, end: 20130501
  7. RAMIPRIL. [Suspect]
     Active Substance: RAMIPRIL
     Dosage: UNK
     Route: 048
     Dates: start: 20130411, end: 20130430
  8. QUILONIUM-R [Interacting]
     Active Substance: LITHIUM CARBONATE
     Dosage: 675 MG/TG
     Route: 048
     Dates: start: 20130502, end: 20130502
  9. MIRTAZAPINE. [Interacting]
     Active Substance: MIRTAZAPINE
     Dosage: 7.5 MG/TG
     Route: 048
     Dates: start: 20130512, end: 20130514
  10. TRAMAL [Concomitant]
     Active Substance: TRAMADOL
     Dosage: UNK
     Route: 065
  11. PANTOPRAZOLE [Concomitant]
     Active Substance: PANTOPRAZOLE SODIUM
     Dosage: UNK
     Route: 065
  12. BUPROPION. [Interacting]
     Active Substance: BUPROPION
     Dosage: 300 MG/TG
     Route: 048
     Dates: start: 20130418
  13. CARVEDILOL. [Concomitant]
     Active Substance: CARVEDILOL
     Dosage: UNK
     Route: 065
  14. LORAZEPAM. [Concomitant]
     Active Substance: LORAZEPAM
     Dosage: UNK
     Route: 065
  15. QUETIAPINE. [Interacting]
     Active Substance: QUETIAPINE
     Dosage: UNK
     Route: 048
     Dates: end: 20130624
  16. MIRTAZAPINE. [Interacting]
     Active Substance: MIRTAZAPINE
     Dosage: 15 MG/TG
     Route: 048
     Dates: start: 20130506, end: 20130511
  17. MIRTAZAPINE. [Interacting]
     Active Substance: MIRTAZAPINE
     Dosage: 30 MG/TG
     Route: 048
     Dates: start: 20130406, end: 20130505
  18. ZOPICLONE [Concomitant]
     Active Substance: ZOPICLONE
     Dosage: UNK
     Route: 065
     Dates: start: 20130406

REACTIONS (4)
  - Psychomotor hyperactivity [Unknown]
  - Drug interaction [Unknown]
  - Delirium [Unknown]
  - Confusional state [Unknown]

NARRATIVE: CASE EVENT DATE: 20130503
